FAERS Safety Report 13688579 (Version 3)
Quarter: 2017Q3

REPORT INFORMATION
  Report Type: Spontaneous
  Country: GB (occurrence: GB)
  Receive Date: 20170626
  Receipt Date: 20170724
  Transmission Date: 20171127
  Serious: Yes (Other)
  Sender: FDA-Public Use
  Company Number: PHFR2017GB004813

PATIENT
  Age: 83 Year
  Sex: Female

DRUGS (1)
  1. ZYKADIA [Suspect]
     Active Substance: CERITINIB
     Indication: NON-SMALL CELL LUNG CANCER
     Dosage: 150 MG, UNK
     Route: 065

REACTIONS (5)
  - Malignant neoplasm progression [Unknown]
  - Product physical issue [Unknown]
  - Non-small cell lung cancer [Unknown]
  - Oral candidiasis [Unknown]
  - Oesophageal candidiasis [Unknown]
